FAERS Safety Report 10093764 (Version 1)
Quarter: 2014Q2

REPORT INFORMATION
  Report Type: Spontaneous
  Country: US (occurrence: US)
  Receive Date: 20140421
  Receipt Date: 20140421
  Transmission Date: 20141212
  Serious: No
  Sender: FDA-Public Use
  Company Number: US-SA-2014SA010969

PATIENT
  Age: 75 Year
  Sex: Male

DRUGS (2)
  1. ALLEGRA 24 HOUR [Suspect]
     Indication: HYPERSENSITIVITY
     Route: 048
     Dates: start: 20140124, end: 20140124
  2. TETANUS TOXOID [Suspect]
     Route: 065
     Dates: start: 20140124

REACTIONS (3)
  - Heart rate increased [Recovering/Resolving]
  - Dizziness [Recovering/Resolving]
  - Labelled drug-food interaction medication error [Unknown]
